FAERS Safety Report 12185070 (Version 1)
Quarter: 2016Q1

REPORT INFORMATION
  Report Type: Report from Study
  Country: JP (occurrence: JP)
  Receive Date: 20160316
  Receipt Date: 20160316
  Transmission Date: 20160526
  Serious: Yes (Other)
  Sender: FDA-Public Use
  Company Number: PHHY2013JP168318

PATIENT
  Age: 61 Year
  Sex: Female
  Weight: 63 kg

DRUGS (5)
  1. ELTROMBOPAG [Suspect]
     Active Substance: ELTROMBOPAG
     Indication: IMMUNE THROMBOCYTOPENIC PURPURA
     Dosage: 12.5 MG, QD
     Route: 048
     Dates: start: 20130201, end: 20130228
  2. RULID [Suspect]
     Active Substance: ROXITHROMYCIN
     Indication: INFECTED DERMAL CYST
     Dosage: 300 MG, QD DIVIDED IN UNKNOWN TIMES
     Route: 048
     Dates: start: 20130322, end: 20130415
  3. ELTROMBOPAG [Suspect]
     Active Substance: ELTROMBOPAG
     Dosage: 25 MG, QD
     Route: 048
     Dates: start: 20130301, end: 20130425
  4. ELTROMBOPAG [Suspect]
     Active Substance: ELTROMBOPAG
     Dosage: 37.5 MG, QD
     Route: 048
     Dates: start: 20130426, end: 20130509
  5. ELTROMBOPAG [Suspect]
     Active Substance: ELTROMBOPAG
     Dosage: 25 MG, QD
     Route: 048
     Dates: start: 20130510

REACTIONS (7)
  - Blood pressure increased [Recovering/Resolving]
  - Synovial cyst [Recovering/Resolving]
  - Transaminases increased [Recovered/Resolved]
  - Renal impairment [Not Recovered/Not Resolved]
  - Infected dermal cyst [Recovering/Resolving]
  - Spinal ligament ossification [Not Recovered/Not Resolved]
  - Conjunctivitis [Unknown]

NARRATIVE: CASE EVENT DATE: 20130204
